FAERS Safety Report 23681351 (Version 1)
Quarter: 2024Q1

REPORT INFORMATION
  Report Type: Spontaneous
  Country: US (occurrence: US)
  Receive Date: 20240328
  Receipt Date: 20240328
  Transmission Date: 20240410
  Serious: No
  Sender: FDA-Public Use
  Company Number: US-TAKEDA-2024TUS028518

PATIENT

DRUGS (4)
  1. GATTEX [Suspect]
     Active Substance: TEDUGLUTIDE\WATER
     Indication: Gastrointestinal stoma complication
     Dosage: UNK
     Route: 065
  2. GATTEX [Suspect]
     Active Substance: TEDUGLUTIDE\WATER
     Indication: Gastrointestinal stoma complication
     Dosage: UNK
     Route: 065
  3. GATTEX [Suspect]
     Active Substance: TEDUGLUTIDE\WATER
     Indication: Gastrointestinal stoma complication
     Dosage: UNK
     Route: 065
  4. GATTEX [Suspect]
     Active Substance: TEDUGLUTIDE\WATER
     Indication: Gastrointestinal stoma complication
     Dosage: UNK
     Route: 065

REACTIONS (2)
  - Insurance issue [Unknown]
  - Product prescribing issue [Unknown]
